FAERS Safety Report 9176408 (Version 2)
Quarter: 2013Q2

REPORT INFORMATION
  Report Type: Spontaneous
  Country: US (occurrence: US)
  Receive Date: 20130321
  Receipt Date: 20130509
  Transmission Date: 20140414
  Serious: No
  Sender: FDA-Public Use
  Company Number: US-009507513-1303USA008731

PATIENT
  Age: 38 Year
  Sex: Female
  Weight: 58.96 kg

DRUGS (1)
  1. PROVENTIL [Suspect]
     Indication: BRONCHOSPASM
     Dosage: TOTAL DAILY DOSE:Q4H PRN
     Route: 055
     Dates: start: 20120320

REACTIONS (5)
  - Drug hypersensitivity [Unknown]
  - Dyspnoea [Recovered/Resolved]
  - Chest pain [Recovered/Resolved]
  - Chest discomfort [Recovered/Resolved]
  - Throat tightness [Recovered/Resolved]
